FAERS Safety Report 9803907 (Version 1)
Quarter: 2014Q1

REPORT INFORMATION
  Report Type: Spontaneous
  Country: GB (occurrence: GB)
  Receive Date: 20140108
  Receipt Date: 20140108
  Transmission Date: 20141002
  Serious: Yes (Other)
  Sender: FDA-Public Use
  Company Number: GB-TEVA-454509ISR

PATIENT
  Age: 21 Year
  Sex: Female
  Weight: 84.36 kg

DRUGS (7)
  1. PAROXETINE [Suspect]
     Indication: POST-TRAUMATIC STRESS DISORDER
     Dosage: 20 MILLIGRAM DAILY;
     Route: 048
     Dates: start: 20130311
  2. OMEPRAZOLE SODIUM [Concomitant]
  3. METOCLOPRAMIDE [Concomitant]
  4. NORTRIPTYLINE HYDROCHLORIDE [Concomitant]
  5. MEBEVERINE [Concomitant]
  6. IRON [Concomitant]
  7. DOMPERIDONE [Concomitant]

REACTIONS (2)
  - Sleep attacks [Not Recovered/Not Resolved]
  - Fatigue [Not Recovered/Not Resolved]
